FAERS Safety Report 19513986 (Version 4)
Quarter: 2021Q3

REPORT INFORMATION
  Report Type: Spontaneous
  Country: BR (occurrence: BR)
  Receive Date: 20210709
  Receipt Date: 20210720
  Transmission Date: 20211014
  Serious: Yes (Hospitalization)
  Sender: FDA-Public Use
  Company Number: BR-DSJP-DSE-2021-121272

PATIENT
  Sex: Male

DRUGS (8)
  1. LIXIANA 60MG [Suspect]
     Active Substance: EDOXABAN TOSYLATE
     Indication: PULMONARY EMBOLISM
  2. LIXIANA 60MG [Suspect]
     Active Substance: EDOXABAN TOSYLATE
     Indication: THROMBOSIS
  3. LIXIANA 30MG [Suspect]
     Active Substance: EDOXABAN TOSYLATE
     Indication: PULMONARY EMBOLISM
  4. BENICAR HCT [Suspect]
     Active Substance: HYDROCHLOROTHIAZIDE\OLMESARTAN MEDOXOMIL
     Indication: PRODUCT USED FOR UNKNOWN INDICATION
     Dosage: 40/12.5 MG
     Route: 065
  5. LIXIANA 60MG [Suspect]
     Active Substance: EDOXABAN TOSYLATE
     Indication: CORONAVIRUS INFECTION
     Dosage: 60 MG
     Route: 065
  6. LIXIANA 30MG [Suspect]
     Active Substance: EDOXABAN TOSYLATE
     Indication: CORONAVIRUS INFECTION
     Dosage: 30 MG
     Route: 065
  7. LIXIANA 30MG [Suspect]
     Active Substance: EDOXABAN TOSYLATE
     Indication: THROMBOSIS
  8. BENICAR [Suspect]
     Active Substance: OLMESARTAN MEDOXOMIL
     Indication: PRODUCT USED FOR UNKNOWN INDICATION
     Dosage: UNK
     Route: 065

REACTIONS (7)
  - Coronavirus infection [Recovering/Resolving]
  - Pulmonary embolism [Recovering/Resolving]
  - Product use in unapproved indication [Not Recovered/Not Resolved]
  - Drug effective for unapproved indication [Not Recovered/Not Resolved]
  - Off label use [Not Recovered/Not Resolved]
  - Thrombosis [Recovering/Resolving]
  - Blood pressure decreased [Recovered/Resolved]
